FAERS Safety Report 8824895 (Version 1)
Quarter: 2012Q4

REPORT INFORMATION
  Report Type: Report from Study
  Country: CA (occurrence: CA)
  Receive Date: 20121004
  Receipt Date: 20121004
  Transmission Date: 20130627
  Serious: Yes (Other)
  Sender: FDA-Public Use
  Company Number: CA-ROCHE-1137298

PATIENT
  Sex: Male

DRUGS (6)
  1. MABTHERA [Suspect]
     Indication: IDIOPATHIC THROMBOCYTOPENIC PURPURA
     Route: 042
     Dates: start: 20120614, end: 20120705
  2. K-DUR [Concomitant]
  3. GABAPENTIN [Concomitant]
  4. COVERSYL [Concomitant]
  5. INSULIN [Concomitant]
  6. IRON, TABLETS [Concomitant]

REACTIONS (1)
  - Platelet count abnormal [Unknown]
